FAERS Safety Report 6341382-3 (Version None)
Quarter: 2009Q3

REPORT INFORMATION
  Report Type: 
  Country: None (occurrence: None)
  Receive Date: 20090904
  Receipt Date: 20090826
  Transmission Date: 20100115
  Serious: Yes (Other)
  Sender: FDA-Public Use
  Company Number: US-JNJCH-2009023323

PATIENT
  Age: 50 Year
  Sex: Female
  Weight: 55.3 kg

DRUGS (1)
  1. COOL MINT LISTERINE [Suspect]
     Indication: GINGIVITIS
     Dosage: TEXT:TWO TEASPOONS, 6 TO 7 TIMES DAILY
     Route: 048

REACTIONS (2)
  - BLOOD URINE [None]
  - OVERDOSE [None]
